FAERS Safety Report 8384180-1 (Version None)
Quarter: 2012Q2

REPORT INFORMATION
  Report Type: 
  Country: None (occurrence: None)
  Receive Date: 20120524
  Receipt Date: 20120518
  Transmission Date: 20120825
  Serious: Yes (Death)
  Sender: FDA-Public Use
  Company Number: US-CELGENEUS-163-21880-12052417

PATIENT
  Sex: Male

DRUGS (9)
  1. COLACE [Concomitant]
     Dosage: 100 MILLIGRAM
     Route: 048
  2. PEPCID AC [Concomitant]
     Dosage: 20 MILLIGRAM
     Route: 048
  3. VITAMIN D [Concomitant]
     Dosage: 1000 UNIT
     Route: 048
  4. VALTREX [Concomitant]
     Dosage: 500 MILLIGRAM
     Route: 048
  5. REVLIMID [Suspect]
     Indication: MULTIPLE MYELOMA
     Dosage: 25 MILLIGRAM
     Route: 048
     Dates: start: 20120317, end: 20120101
  6. HYDROMORPHONE HCL [Concomitant]
     Dosage: 2 MILLIGRAM
     Route: 048
  7. LYRICA [Concomitant]
     Dosage: 200 MILLIGRAM
     Route: 048
  8. VITAMIN B-12 [Concomitant]
     Dosage: 1000
     Route: 048
  9. ASPIRIN [Concomitant]
     Dosage: 81 MILLIGRAM
     Route: 048

REACTIONS (1)
  - DEATH [None]
